FAERS Safety Report 26194551 (Version 1)
Quarter: 2025Q4

REPORT INFORMATION
  Report Type: Spontaneous
  Country: US (occurrence: US)
  Receive Date: 20251224
  Receipt Date: 20251224
  Transmission Date: 20260117
  Serious: Yes (Hospitalization)
  Sender: ORION PHARMA
  Company Number: US-MLMSERVICE-20251215-PI750402-00218-1

PATIENT
  Age: 67 Year
  Sex: Female

DRUGS (1)
  1. METHOTREXATE [Suspect]
     Active Substance: METHOTREXATE
     Indication: Rheumatoid arthritis

REACTIONS (2)
  - Histoplasmosis disseminated [Recovered/Resolved]
  - Haemophagocytic lymphohistiocytosis [Recovered/Resolved]
